FAERS Safety Report 10498892 (Version 1)
Quarter: 2014Q4

REPORT INFORMATION
  Report Type: Spontaneous
  Country: US (occurrence: US)
  Receive Date: 20141006
  Receipt Date: 20141006
  Transmission Date: 20150528
  Serious: No
  Sender: FDA-Public Use
  Company Number: US-PFIZER INC-2014270870

PATIENT
  Age: 58 Year
  Sex: Female
  Weight: 49.89 kg

DRUGS (3)
  1. ENALAPRIL [Concomitant]
     Active Substance: ENALAPRIL
     Indication: HYPERTENSION
     Dosage: 20 MG, 2X/DAY
  2. VIAGRA [Suspect]
     Active Substance: SILDENAFIL CITRATE
     Dosage: UNK
     Route: 050
     Dates: start: 2013
  3. AMLODIPINE [Concomitant]
     Active Substance: AMLODIPINE BESYLATE
     Indication: HYPERTENSION
     Dosage: 5 MG, 1X/DAY

REACTIONS (8)
  - Nasal congestion [Unknown]
  - Malaise [Unknown]
  - Exposure via partner [Unknown]
  - Memory impairment [Unknown]
  - Oropharyngeal pain [Unknown]
  - Nausea [Unknown]
  - Vision blurred [Unknown]
  - Personality disorder [Unknown]

NARRATIVE: CASE EVENT DATE: 2014
